FAERS Safety Report 13207507 (Version 3)
Quarter: 2017Q3

REPORT INFORMATION
  Report Type: Spontaneous
  Country: US (occurrence: US)
  Receive Date: 20170209
  Receipt Date: 20170803
  Transmission Date: 20171127
  Serious: No
  Sender: FDA-Public Use
  Company Number: US-SA-2017SA005149

PATIENT
  Age: 70 Year
  Sex: Female

DRUGS (6)
  1. ALIROCUMAB PREFILLED SYRINGE [Concomitant]
     Indication: HYPERLIPIDAEMIA
     Dates: start: 20170105
  2. PRALUENT [Suspect]
     Active Substance: ALIROCUMAB
     Indication: HYPERLIPIDAEMIA
     Route: 058
     Dates: start: 20170105
  3. PRALUENT [Suspect]
     Active Substance: ALIROCUMAB
     Indication: HYPERLIPIDAEMIA
     Route: 058
     Dates: start: 20160301
  4. PRALUENT [Suspect]
     Active Substance: ALIROCUMAB
     Indication: HYPERLIPIDAEMIA
     Route: 058
     Dates: start: 20160831
  5. ALIROCUMAB PREFILLED SYRINGE [Concomitant]
     Indication: HYPERLIPIDAEMIA
     Dates: start: 20160301
  6. ALIROCUMAB PREFILLED SYRINGE [Concomitant]
     Indication: HYPERLIPIDAEMIA
     Dates: start: 20160831

REACTIONS (5)
  - Alopecia [Unknown]
  - Trichorrhexis [Recovering/Resolving]
  - Blood pressure increased [Unknown]
  - Pharyngitis [Unknown]
  - Anxiety [Unknown]

NARRATIVE: CASE EVENT DATE: 20170101
